FAERS Safety Report 12704476 (Version 2)
Quarter: 2016Q3

REPORT INFORMATION
  Report Type: Spontaneous
  Country: US (occurrence: US)
  Receive Date: 20160831
  Receipt Date: 20160919
  Transmission Date: 20161109
  Serious: No
  Sender: FDA-Public Use
  Company Number: US-BAYER-2016-169904

PATIENT
  Age: 3 Year
  Sex: Female
  Weight: 23 kg

DRUGS (2)
  1. CHILDREN CLARITIN ALLERGY [Suspect]
     Active Substance: LORATADINE
     Dosage: 2 DF, ONCE
     Route: 048
  2. CHILDREN CLARITIN ALLERGY [Suspect]
     Active Substance: LORATADINE
     Dosage: USED 8 MONTHS AGO

REACTIONS (2)
  - Failure of child resistant mechanism for pharmaceutical product [None]
  - Accidental exposure to product by child [Unknown]
